FAERS Safety Report 11722765 (Version 2)
Quarter: 2015Q4

REPORT INFORMATION
  Report Type: Report from Study
  Country: US (occurrence: US)
  Receive Date: 20151111
  Receipt Date: 20151207
  Transmission Date: 20160304
  Serious: Yes (Other)
  Sender: FDA-Public Use
  Company Number: US-BAYER-2015-463309

PATIENT
  Age: 42 Year
  Sex: Male
  Weight: 85.4 kg

DRUGS (10)
  1. REGORAFENIB [Suspect]
     Active Substance: REGORAFENIB
     Indication: LIPOSARCOMA
     Dosage: 160 MG, QD, 3/4 WKS
     Dates: start: 20151022, end: 20151102
  2. REGORAFENIB [Suspect]
     Active Substance: REGORAFENIB
     Indication: LIPOSARCOMA
     Dosage: 160 MG, QD, 3/4 WKS
     Dates: start: 20150923, end: 20151013
  3. AMLODIPINE [Concomitant]
     Active Substance: AMLODIPINE BESYLATE
     Dosage: 10 MG, QD
  4. DRONABINOL. [Concomitant]
     Active Substance: DRONABINOL
     Dosage: 10 MG, BID
  5. ESZOPICLONE. [Concomitant]
     Active Substance: ESZOPICLONE
     Dosage: 3 MG, HS, PRN
  6. IBUPROFEN. [Concomitant]
     Active Substance: IBUPROFEN
     Dosage: 200 MG, QID, PRN
  7. LITHIUM. [Concomitant]
     Active Substance: LITHIUM
     Dosage: 300 MG, BID
  8. PLACEBO [Suspect]
     Active Substance: UNSPECIFIED INGREDIENT
     Indication: LIPOSARCOMA
     Dosage: UNK
     Dates: start: 20150804
  9. OXYCODONE [Concomitant]
     Active Substance: OXYCODONE
     Dosage: 10 MG, 6ID, PRN
  10. OXYCODONE [Concomitant]
     Active Substance: OXYCODONE
     Dosage: 90 MG, BID

REACTIONS (2)
  - Deep vein thrombosis [None]
  - Pulmonary embolism [None]

NARRATIVE: CASE EVENT DATE: 20151103
